FAERS Safety Report 5406890-8 (Version None)
Quarter: 2007Q3

REPORT INFORMATION
  Report Type: 
  Country: None (occurrence: None)
  Receive Date: 20070802
  Receipt Date: 20070720
  Transmission Date: 20080115
  Serious: Yes (Hospitalization)
  Sender: FDA-Public Use
  Company Number: DE-JNJFOC-200707 04944

PATIENT
  Age: 64 Year
  Sex: Female
  Weight: 98 kg

DRUGS (6)
  1. DECITABINE (DECITABINE) LYOPHILIZED POWDER [Suspect]
     Indication: MYELODYSPLASTIC SYNDROME
     Dosage: 270 MG, IN 6 WEEK, INTRAVENOUS
     Route: 042
     Dates: start: 20070129, end: 20070520
  2. TAVANIC (LEVOFLOXACIN) UNSPECIFIED [Concomitant]
  3. UNACID (UNACID) [Concomitant]
  4. DIFLUCAN (FLUCONAZOLE) UNSPECIFIED [Concomitant]
  5. INSULIN HUMAN (INSULIN HUMAN) UNSPECIFIED [Concomitant]
  6. CEPHORAL (CEFIXIME) UNSPECIFIED [Concomitant]

REACTIONS (5)
  - DRUG TOXICITY [None]
  - GASTROINTESTINAL HAEMORRHAGE [None]
  - MYALGIA [None]
  - PROCTITIS [None]
  - THROMBOCYTOPENIA [None]
